FAERS Safety Report 7265181-3 (Version None)
Quarter: 2011Q1

REPORT INFORMATION
  Report Type: 
  Country: None (occurrence: None)
  Receive Date: 20110131
  Receipt Date: 20110125
  Transmission Date: 20110831
  Serious: Yes (Death, Hospitalization)
  Sender: FDA-Public Use
  Company Number: PHHY2011BE04490

PATIENT
  Age: 72 Year
  Sex: Male

DRUGS (8)
  1. ALISKIREN [Suspect]
     Indication: HYPERTENSION
     Dosage: 300 MG, UNK
  2. LOSARTAN POTASSIUM [Concomitant]
  3. NOBITEN [Concomitant]
  4. NOVONORM [Concomitant]
  5. MODURETIC 5-50 [Concomitant]
  6. VASEXTEN [Concomitant]
  7. MOXONIDINE [Concomitant]
  8. DIAMICRON [Concomitant]

REACTIONS (2)
  - PNEUMONIA [None]
  - CHOKING [None]
